FAERS Safety Report 9272239 (Version 74)
Quarter: 2024Q2

REPORT INFORMATION
  Report Type: Report from Study
  Country: CA (occurrence: CA)
  Receive Date: 20130506
  Receipt Date: 20240502
  Transmission Date: 20240716
  Serious: Yes (Hospitalization, Other)
  Sender: FDA-Public Use
  Company Number: PHHY2013CA043595

PATIENT
  Sex: Male

DRUGS (15)
  1. SANDOSTATIN [Suspect]
     Active Substance: OCTREOTIDE ACETATE
     Indication: Neuroendocrine carcinoma
     Dosage: 100 UG, ONCE/SINGLE (TEST DOSE)
     Route: 058
     Dates: start: 20130415, end: 20130415
  2. SANDOSTATIN [Suspect]
     Active Substance: OCTREOTIDE ACETATE
     Dosage: 60 MG, Q4W, 4 WEEKS
     Route: 030
     Dates: start: 20130429
  3. SANDOSTATIN [Suspect]
     Active Substance: OCTREOTIDE ACETATE
  4. SANDOSTATIN LAR DEPOT [Suspect]
     Active Substance: OCTREOTIDE ACETATE
     Indication: Neuroendocrine carcinoma
     Dosage: 30 MG, Q3W
     Route: 030
     Dates: start: 20130429
  5. SANDOSTATIN LAR DEPOT [Suspect]
     Active Substance: OCTREOTIDE ACETATE
     Dosage: 60 MG, Q4W
     Route: 030
     Dates: start: 20130429
  6. SANDOSTATIN LAR DEPOT [Suspect]
     Active Substance: OCTREOTIDE ACETATE
     Dosage: 60 MG, QMO
     Route: 030
     Dates: start: 20141029
  7. SANDOSTATIN LAR DEPOT [Suspect]
     Active Substance: OCTREOTIDE ACETATE
     Dosage: 30 MG, QMO (ONCE A MONTH)
     Route: 030
  8. SANDOSTATIN LAR DEPOT [Suspect]
     Active Substance: OCTREOTIDE ACETATE
     Dosage: 60 MG, ONCE (EVERY 3 WEEKS)
     Route: 030
     Dates: start: 20150227
  9. SANDOSTATIN LAR DEPOT [Suspect]
     Active Substance: OCTREOTIDE ACETATE
     Dosage: 30 MG, QMO (ONCE A MONTH)
     Route: 030
  10. SANDOSTATIN LAR DEPOT [Suspect]
     Active Substance: OCTREOTIDE ACETATE
     Dosage: 60 MG, (EVERY 3 WEEKS)
     Route: 030
  11. SANDOSTATIN LAR DEPOT [Suspect]
     Active Substance: OCTREOTIDE ACETATE
     Dosage: 30 MG, (EVERY 3 WEEKS)
     Route: 030
     Dates: start: 20150810
  12. SANDOSTATIN LAR DEPOT [Suspect]
     Active Substance: OCTREOTIDE ACETATE
     Dosage: 60 MG, Q4W
     Route: 030
  13. JARDIANCE [Concomitant]
     Active Substance: EMPAGLIFLOZIN
     Indication: Product used for unknown indication
     Dosage: 30 MG, QD
     Route: 065
  14. CRESTOR [Concomitant]
     Active Substance: ROSUVASTATIN CALCIUM
     Indication: Stress
     Dosage: 5 MG, QD
     Route: 065
  15. CRESTOR [Concomitant]
     Active Substance: ROSUVASTATIN CALCIUM
     Dosage: 10 MG, QD
     Route: 065

REACTIONS (35)
  - Muscle spasms [Unknown]
  - Pain [Unknown]
  - Biliary colic [Unknown]
  - Jaundice [Unknown]
  - Vomiting [Recovered/Resolved]
  - Post procedural infection [Unknown]
  - Blood pressure increased [Unknown]
  - Blood pressure decreased [Unknown]
  - Hepatic lesion [Unknown]
  - Arthralgia [Unknown]
  - Arthritis [Unknown]
  - Oropharyngeal pain [Unknown]
  - Respiratory tract congestion [Unknown]
  - Cough [Unknown]
  - Body temperature decreased [Unknown]
  - Glycosylated haemoglobin decreased [Unknown]
  - Osteoarthritis [Unknown]
  - Hot flush [Unknown]
  - Mood altered [Unknown]
  - White blood cell count increased [Unknown]
  - Joint swelling [Unknown]
  - Peripheral swelling [Unknown]
  - Gout [Unknown]
  - Pain in extremity [Unknown]
  - Vascular calcification [Unknown]
  - Blood glucose abnormal [Unknown]
  - Abdominal distension [Unknown]
  - Localised infection [Unknown]
  - Blood glucose decreased [Unknown]
  - Dyspnoea [Unknown]
  - Abdominal pain [Unknown]
  - Fatigue [Unknown]
  - Diarrhoea [Not Recovered/Not Resolved]
  - Nausea [Unknown]
  - Inappropriate schedule of product administration [Unknown]

NARRATIVE: CASE EVENT DATE: 20130722
